FAERS Safety Report 8022711-1 (Version None)
Quarter: 2012Q1

REPORT INFORMATION
  Report Type: 
  Country: None (occurrence: None)
  Receive Date: 20120104
  Receipt Date: 20111223
  Transmission Date: 20120608
  Serious: Yes (Hospitalization)
  Sender: FDA-Public Use
  Company Number: DE-TEVA-315074GER

PATIENT
  Age: 59 Year
  Sex: Male

DRUGS (3)
  1. DOXORUBICIN HCL [Suspect]
     Indication: PLASMACYTOMA
     Route: 042
     Dates: start: 20100720
  2. DEXAMETHASONE [Suspect]
     Indication: PLASMACYTOMA
     Route: 042
     Dates: start: 20100720, end: 20100808
  3. BORTEZOMIB [Suspect]
     Indication: PLASMACYTOMA
     Route: 042
     Dates: start: 20100720

REACTIONS (2)
  - PNEUMONIA [None]
  - PULMONARY EMBOLISM [None]
